FAERS Safety Report 13682044 (Version 1)
Quarter: 2017Q2

REPORT INFORMATION
  Report Type: Spontaneous
  Country: US (occurrence: US)
  Receive Date: 20170623
  Receipt Date: 20170623
  Transmission Date: 20170830
  Serious: Yes (Hospitalization)
  Sender: FDA-Public Use
  Company Number: US-LPDUSPRD-20170813

PATIENT
  Age: 80 Year
  Sex: Male

DRUGS (1)
  1. METOPROLOL TARTRATE INJECTION, USP (1455-10) [Suspect]
     Active Substance: METOPROLOL TARTRATE
     Dosage: DOSE NOT PROVIDED
     Route: 065

REACTIONS (2)
  - Syncope [Recovered/Resolved]
  - Hyperkalaemia [Recovered/Resolved]
